FAERS Safety Report 13142822 (Version 2)
Quarter: 2017Q1

REPORT INFORMATION
  Report Type: Report from Study
  Country: None (occurrence: US)
  Receive Date: 20170123
  Receipt Date: 20170302
  Transmission Date: 20170428
  Serious: Yes (Hospitalization, Other)
  Sender: FDA-Public Use
  Company Number: US-ABBVIE-17K-163-1840905-00

PATIENT
  Age: 33 Year
  Sex: Female

DRUGS (3)
  1. HUMIRA [Suspect]
     Active Substance: ADALIMUMAB
     Route: 058
  2. METHOTREXATE. [Concomitant]
     Active Substance: METHOTREXATE
     Indication: PRODUCT USED FOR UNKNOWN INDICATION
     Dates: start: 201701
  3. HUMIRA [Suspect]
     Active Substance: ADALIMUMAB
     Indication: CROHN^S DISEASE
     Route: 058
     Dates: start: 201409, end: 201503

REACTIONS (15)
  - Necrosis [Recovered/Resolved]
  - Ileostomy closure [Recovered/Resolved]
  - Wrong technique in product usage process [Unknown]
  - Tooth disorder [Unknown]
  - Hypoaesthesia [Unknown]
  - Crohn^s disease [Not Recovered/Not Resolved]
  - Injection site haemorrhage [Recovered/Resolved]
  - Hypotension [Recovered/Resolved]
  - Tricuspid valve replacement [Unknown]
  - Feeling abnormal [Recovered/Resolved]
  - General physical health deterioration [Unknown]
  - Injection site pain [Recovered/Resolved]
  - Unresponsive to stimuli [Recovered/Resolved]
  - Incorrect dose administered [Unknown]
  - Mitral valve repair [Unknown]

NARRATIVE: CASE EVENT DATE: 201409
